FAERS Safety Report 16462659 (Version 1)
Quarter: 2019Q2

REPORT INFORMATION
  Report Type: Spontaneous
  Country: US (occurrence: US)
  Receive Date: 20190621
  Receipt Date: 20190621
  Transmission Date: 20190711
  Serious: Yes (Other)
  Sender: FDA-Public Use
  Company Number: US-SA-2019SA159893

PATIENT
  Age: 79 Year
  Sex: Female

DRUGS (1)
  1. LANTUS SOLOSTAR [Suspect]
     Active Substance: INSULIN GLARGINE
     Indication: DIABETES MELLITUS
     Dosage: 18 U, BID
     Route: 065
     Dates: start: 2018

REACTIONS (6)
  - Inappropriate schedule of product administration [Unknown]
  - Product storage error [Unknown]
  - Hypertension [Unknown]
  - Thyroid cancer [Unknown]
  - Blood glucose increased [Unknown]
  - Coronary artery disease [Unknown]

NARRATIVE: CASE EVENT DATE: 2018
